FAERS Safety Report 25884397 (Version 2)
Quarter: 2025Q4

REPORT INFORMATION
  Report Type: Report from Study
  Country: CN (occurrence: CN)
  Receive Date: 20251006
  Receipt Date: 20251231
  Transmission Date: 20260118
  Serious: Yes (Other)
  Sender: Vantive US Healthcare
  Company Number: CN-VANTIVE-2025VAN004548

PATIENT
  Age: 55 Year
  Sex: Male
  Weight: 65 kg

DRUGS (31)
  1. DIANEAL [Suspect]
     Active Substance: CALCIUM CHLORIDE\DEXTROSE\MAGNESIUM CHLORIDE\SODIUM CHLORIDE\SODIUM LACTATE
     Indication: End stage renal disease
     Dosage: 2L, 2 BAGS PER DAY
  2. DIANEAL [Suspect]
     Active Substance: CALCIUM CHLORIDE\DEXTROSE\MAGNESIUM CHLORIDE\SODIUM CHLORIDE\SODIUM LACTATE
     Dosage: 2L, 2 BAGS PER DAY
     Dates: start: 20240911, end: 20241015
  3. DIANEAL [Suspect]
     Active Substance: CALCIUM CHLORIDE\DEXTROSE\MAGNESIUM CHLORIDE\SODIUM CHLORIDE\SODIUM LACTATE
     Dosage: 2L, 3 BAGS PER DAY
     Dates: start: 20241016, end: 20241119
  4. EXTRANEAL [Suspect]
     Active Substance: CALCIUM CHLORIDE\ICODEXTRIN\MAGNESIUM CHLORIDE\SODIUM CHLORIDE\SODIUM LACTATE
     Indication: End stage renal disease
     Dosage: 2L, 1BAG PER DAY
     Dates: start: 20240911, end: 20241015
  5. EXTRANEAL [Suspect]
     Active Substance: CALCIUM CHLORIDE\ICODEXTRIN\MAGNESIUM CHLORIDE\SODIUM CHLORIDE\SODIUM LACTATE
     Dosage: 2L, 1 BAG PER DAY
  6. SACUBITRIL\VALSARTAN [Concomitant]
     Active Substance: SACUBITRIL\VALSARTAN
     Indication: Hypertension
     Dosage: 100 MG ONCE A DAY (QD)
     Dates: start: 20240521, end: 20240826
  7. SACUBITRIL\VALSARTAN [Concomitant]
     Active Substance: SACUBITRIL\VALSARTAN
     Dosage: 100 MG (BID) TWICE A DAY
  8. METOPROLOL [Concomitant]
     Active Substance: METOPROLOL
     Indication: Hypertension
     Dosage: 47.5 MG ONCE A DAY (QD)
     Dates: start: 20240521, end: 20240716
  9. FERRIC POLYSACCHARIDE COMPLEX [Concomitant]
     Active Substance: FERRIC POLYSACCHARIDE COMPLEX
     Indication: Iron deficiency anaemia
     Dosage: 0.15 GRAM QD (ONCE DAILY)
     Dates: start: 20240618, end: 20240828
  10. FERRIC POLYSACCHARIDE COMPLEX [Concomitant]
     Active Substance: FERRIC POLYSACCHARIDE COMPLEX
     Dosage: 0.15 GRAM QD (ONCE DAILY)
  11. FERRIC POLYSACCHARIDE COMPLEX [Concomitant]
     Active Substance: FERRIC POLYSACCHARIDE COMPLEX
     Dosage: 0.15 GRAM QD (ONCE DAILY)
  12. CALCITRIOL [Concomitant]
     Active Substance: CALCITRIOL
     Indication: Nephropathy
     Dosage: 0.25 UG BID (TWICE A DAY)
  13. CALCITRIOL [Concomitant]
     Active Substance: CALCITRIOL
     Indication: Bone disorder
     Dosage: 0.25 UG QN
  14. CALCITRIOL [Concomitant]
     Active Substance: CALCITRIOL
     Dosage: 0.25 UG QD (ONCE DAILY)
     Dates: start: 20240521, end: 20240818
  15. VOGLIBOSE [Concomitant]
     Active Substance: VOGLIBOSE
     Indication: Diabetes mellitus
     Dosage: 0.2 MG QD (ONCE DAILY)
     Dates: start: 20240424, end: 20240618
  16. REPAGLINIDE [Concomitant]
     Active Substance: REPAGLINIDE
     Indication: Hyperlipidaemia
     Dosage: 0.5 MG QD (ONCE DAILY)
  17. REPAGLINIDE [Concomitant]
     Active Substance: REPAGLINIDE
     Dosage: 0.5 MG QD (ONCE DAILY)
     Dates: start: 20240521, end: 20240907
  18. ATORVASTATIN [Concomitant]
     Active Substance: ATORVASTATIN
     Indication: Hyperlipidaemia
     Dosage: 20 MG QD (ONCE DAILY)
     Dates: start: 20240418, end: 20240826
  19. FEBUXOSTAT [Concomitant]
     Active Substance: FEBUXOSTAT
     Indication: Hyperuricaemia
     Dosage: 20 MG QD (ONCE DAILY)
  20. FEBUXOSTAT [Concomitant]
     Active Substance: FEBUXOSTAT
     Dosage: 40 MG ONCE A DAY (QD)
     Dates: start: 20240418, end: 20240830
  21. FEBUXOSTAT [Concomitant]
     Active Substance: FEBUXOSTAT
     Dosage: 40 MG ONCE A DAY (QD)
  22. TRADJENTA [Concomitant]
     Active Substance: LINAGLIPTIN
     Indication: Hyperlipidaemia
     Dosage: 5MG, ONCE DAILY (OD)
     Dates: start: 20240424, end: 20240623
  23. AMLODIPINE [Concomitant]
     Active Substance: AMLODIPINE BESYLATE
     Indication: Hypertension
     Dosage: 5MG, ONCE DAILY (OD)
  24. FUROSEMIDE [Concomitant]
     Active Substance: FUROSEMIDE
     Indication: Hyperkalaemia
     Dosage: 40 MG ONCE A DAY (QD)
  25. CINACALCET [Concomitant]
     Active Substance: CINACALCET
     Indication: Hyperparathyroidism secondary
     Dosage: 25 MG QD (ONCE DAILY)
  26. ROXADUSTAT [Concomitant]
     Active Substance: ROXADUSTAT
     Indication: Nephrogenic anaemia
     Dosage: 20 MG, QD (ONCE A DAY)
  27. ROXADUSTAT [Concomitant]
     Active Substance: ROXADUSTAT
     Dosage: 100 MG ONCE A DAY (QD)
  28. ROXADUSTAT [Concomitant]
     Active Substance: ROXADUSTAT
     Dosage: 50 MG, QD (ONCE A DAY)
  29. Compound alpha ketoacid [Concomitant]
     Indication: Chronic kidney disease
     Dosage: 2.52 GRAM TID (THRICE A DAY)
  30. TERAZOSIN [Concomitant]
     Active Substance: TERAZOSIN HYDROCHLORIDE
     Indication: Hypertension
     Dosage: 2 MG QN
  31. LINAGLIPTIN [Concomitant]
     Active Substance: LINAGLIPTIN
     Indication: Diabetes mellitus
     Dosage: 5MG, ONCE DAILY (OD)

REACTIONS (2)
  - Hypoglycaemic coma [Recovered/Resolved]
  - Hyperphosphataemia [Not Recovered/Not Resolved]

NARRATIVE: CASE EVENT DATE: 20241015
